FAERS Safety Report 6642007-X (Version None)
Quarter: 2010Q1

REPORT INFORMATION
  Report Type: 
  Country: None (occurrence: None)
  Receive Date: 20100319
  Receipt Date: 20100309
  Transmission Date: 20100710
  Serious: Yes (Hospitalization)
  Sender: FDA-Public Use
  Company Number: CN-JNJFOC-20100303651

PATIENT
  Age: 56 Year
  Sex: Female
  Weight: 59 kg

DRUGS (2)
  1. REMICADE [Suspect]
     Indication: RHEUMATOID ARTHRITIS
     Route: 042
  2. PREDNISONE [Suspect]
     Indication: RHEUMATOID ARTHRITIS

REACTIONS (2)
  - LUNG INFECTION [None]
  - TUBERCULOSIS [None]
